FAERS Safety Report 8231974-9 (Version None)
Quarter: 2012Q1

REPORT INFORMATION
  Report Type: 
  Country: None (occurrence: None)
  Receive Date: 20120323
  Receipt Date: 20120319
  Transmission Date: 20120608
  Serious: No
  Sender: FDA-Public Use
  Company Number: US-BAYER-2012-028182

PATIENT
  Age: 68 Year
  Sex: Male
  Weight: 147 kg

DRUGS (5)
  1. ALEVE (CAPLET) [Suspect]
     Dosage: UNK
     Route: 048
     Dates: start: 20120301
  2. ANTI-DIABETICS [Concomitant]
  3. ALEVE (CAPLET) [Suspect]
     Indication: ARTHRITIS
     Dosage: 2 DF, QD
     Route: 048
     Dates: start: 20040101, end: 20120301
  4. ANTIHYPERTENSIVES [Concomitant]
  5. OXYGEN [Concomitant]

REACTIONS (2)
  - NO ADVERSE EVENT [None]
  - THERAPEUTIC RESPONSE DECREASED [None]
